FAERS Safety Report 15708555 (Version 5)
Quarter: 2019Q1

REPORT INFORMATION
  Report Type: Report from Study
  Country: US (occurrence: US)
  Receive Date: 20181211
  Receipt Date: 20190131
  Transmission Date: 20190417
  Serious: Yes (Other)
  Sender: FDA-Public Use
  Company Number: US-GILEAD-2018-0379037

PATIENT
  Age: 73 Year
  Sex: Female

DRUGS (2)
  1. AMBRISENTAN [Suspect]
     Active Substance: AMBRISENTAN
     Indication: PRODUCT USED FOR UNKNOWN INDICATION
     Dosage: 10 MG
     Route: 065
     Dates: start: 20140929
  2. AMBRISENTAN [Suspect]
     Active Substance: AMBRISENTAN
     Dosage: 5 UNK
     Route: 065

REACTIONS (7)
  - Mineral supplementation [Unknown]
  - Vertigo [Not Recovered/Not Resolved]
  - Deafness [Not Recovered/Not Resolved]
  - Headache [Unknown]
  - Withdrawal syndrome [Unknown]
  - Ill-defined disorder [Unknown]
  - Intentional dose omission [Unknown]
